FAERS Safety Report 6582937-0 (Version None)
Quarter: 2010Q1

REPORT INFORMATION
  Report Type: 
  Country: None (occurrence: None)
  Receive Date: 20100216
  Receipt Date: 20100212
  Transmission Date: 20100710
  Serious: Yes (Hospitalization)
  Sender: FDA-Public Use
  Company Number: ES-BRISTOL-MYERS SQUIBB COMPANY-14735765

PATIENT
  Age: 52 Year
  Sex: Male

DRUGS (4)
  1. VIDEX EC [Suspect]
     Indication: HIV INFECTION
     Route: 048
     Dates: start: 20030101, end: 20070913
  2. METFORMIN HCL [Suspect]
     Indication: TYPE 2 DIABETES MELLITUS
     Route: 048
     Dates: start: 20020101
  3. KALETRA [Suspect]
     Indication: HIV INFECTION
     Dosage: KALETRA 30 BLISTER 6 CAPS
     Route: 048
     Dates: start: 20030101, end: 20070913
  4. VIREAD [Suspect]
     Indication: HIV INFECTION
     Dosage: VIREAD 245 MG 30 COMB CUP PELICULAR
     Route: 048
     Dates: start: 20020219, end: 20041130

REACTIONS (2)
  - EXTRAOCULAR MUSCLE DISORDER [None]
  - EYELID PTOSIS [None]
